FAERS Safety Report 4844783-5 (Version None)
Quarter: 2005Q4

REPORT INFORMATION
  Report Type: 
  Country: None (occurrence: None)
  Receive Date: 20051205
  Receipt Date: 20051124
  Transmission Date: 20060501
  Serious: Yes (Hospitalization)
  Sender: FDA-Public Use
  Company Number: FR-BRISTOL-MYERS SQUIBB COMPANY-13193776

PATIENT
  Age: 66 Year
  Sex: Female

DRUGS (6)
  1. APROVEL TABS 300 MG [Suspect]
     Indication: HYPERTENSION
     Route: 048
  2. HYPERIUM [Concomitant]
  3. ALLOPURINOL [Concomitant]
  4. LEVOTHYROX [Concomitant]
  5. KARDEGIC [Concomitant]
  6. MOPRAL [Concomitant]

REACTIONS (5)
  - ASPARTATE AMINOTRANSFERASE INCREASED [None]
  - BLOOD CREATINE PHOSPHOKINASE INCREASED [None]
  - BLOOD CREATININE INCREASED [None]
  - HYPERGLOBULINAEMIA [None]
  - RASH [None]
